FAERS Safety Report 5545768-6 (Version None)
Quarter: 2007Q4

REPORT INFORMATION
  Report Type: 
  Country: None (occurrence: None)
  Receive Date: 20071211
  Receipt Date: 20071126
  Transmission Date: 20080405
  Serious: Yes (Hospitalization)
  Sender: FDA-Public Use
  Company Number: DE-ELI_LILLY_AND_COMPANY-DE200711006512

PATIENT
  Sex: Female
  Weight: 85 kg

DRUGS (6)
  1. HUMULIN R [Suspect]
     Indication: DIABETES MELLITUS
     Dosage: 16-12-16 IU, DAILY (1/D)
     Route: 058
     Dates: start: 20060901
  2. HUMULIN N [Suspect]
     Indication: DIABETES MELLITUS
     Dosage: 10-2-20 IU, DAILY (1/D)
     Route: 058
     Dates: start: 20070901
  3. ATENOLOL [Concomitant]
     Route: 048
  4. CETIRIZINE HCL [Concomitant]
     Route: 048
  5. RABEPRAZOLE SODIUM [Concomitant]
     Route: 048
  6. FERRO DUODENAL ^SANOL^ [Concomitant]
     Route: 048
     Dates: start: 20061025

REACTIONS (2)
  - CONVULSION [None]
  - HYPOGLYCAEMIA [None]
